FAERS Safety Report 18730596 (Version 1)
Quarter: 2021Q1

REPORT INFORMATION
  Report Type: Spontaneous
  Country: US (occurrence: US)
  Receive Date: 20210112
  Receipt Date: 20210112
  Transmission Date: 20210419
  Serious: Yes (Hospitalization)
  Sender: FDA-Public Use
  Company Number: None

PATIENT
  Age: 69 Year
  Sex: Female
  Weight: 58.5 kg

DRUGS (20)
  1. DOCUSATE [Concomitant]
     Active Substance: DOCUSATE
  2. ONDANSETRON [Concomitant]
     Active Substance: ONDANSETRON
  3. NORMAL SALINE (BOLUS + INFUSION) [Concomitant]
  4. FLUOXETINE [Concomitant]
     Active Substance: FLUOXETINE HYDROCHLORIDE
  5. MIRTAZAPINE. [Concomitant]
     Active Substance: MIRTAZAPINE
  6. ZINC SULFATE. [Concomitant]
     Active Substance: ZINC SULFATE
  7. ACETAMINOPHEN. [Concomitant]
     Active Substance: ACETAMINOPHEN
  8. CEFEPIME [Concomitant]
     Active Substance: CEFEPIME HYDROCHLORIDE
  9. LACTATED RINGERS SOLUTION [Concomitant]
     Active Substance: CALCIUM CHLORIDE\POTASSIUM CHLORIDE\SODIUM CHLORIDE\SODIUM LACTATE
  10. ASCORBIC ACID. [Concomitant]
     Active Substance: ASCORBIC ACID
  11. PANTOPRAZOLE [Concomitant]
     Active Substance: PANTOPRAZOLE
  12. DEXAMETHASONE. [Concomitant]
     Active Substance: DEXAMETHASONE
  13. ENOXAPARIN [Concomitant]
     Active Substance: ENOXAPARIN
  14. MELATONIN [Concomitant]
     Active Substance: MELATONIN
  15. METOPROLOL TARTRATE. [Concomitant]
     Active Substance: METOPROLOL TARTRATE
  16. BAMLANIVIMAB. [Suspect]
     Active Substance: BAMLANIVIMAB
     Indication: COVID-19
     Dosage: ?          OTHER FREQUENCY:ONCE;?
     Route: 041
  17. FAMOTIDINE. [Concomitant]
     Active Substance: FAMOTIDINE
  18. LIDOCAINE. [Concomitant]
     Active Substance: LIDOCAINE
  19. INSULIN (LISPRO) [Concomitant]
     Active Substance: INSULIN LISPRO
  20. HEPARIN [Concomitant]
     Active Substance: HEPARIN SODIUM

REACTIONS (4)
  - Hypotension [None]
  - Pseudomonal bacteraemia [None]
  - Pseudomonas infection [None]
  - Infection [None]

NARRATIVE: CASE EVENT DATE: 20210108
